FAERS Safety Report 16928710 (Version 1)
Quarter: 2019Q4

REPORT INFORMATION
  Report Type: Spontaneous
  Country: US (occurrence: US)
  Receive Date: 20190823
  Receipt Date: 20190823
  Transmission Date: 20200122
  Serious: Yes (Life-Threatening, Hospitalization)
  Sender: FDA-Public Use
  Company Number: None

PATIENT
  Age: 71 Year
  Sex: Male

DRUGS (1)
  1. SOLIQUA 100/33 [Suspect]
     Active Substance: INSULIN GLARGINE\LIXISENATIDE
     Indication: DIABETES MELLITUS
     Route: 058
     Dates: start: 20180125, end: 20181122

REACTIONS (3)
  - Loss of consciousness [None]
  - Product substitution issue [None]
  - Hypoglycaemia [None]

NARRATIVE: CASE EVENT DATE: 20181121
